FAERS Safety Report 4435200-8 (Version None)
Quarter: 2004Q3

REPORT INFORMATION
  Report Type: 
  Country: None (occurrence: None)
  Receive Date: 20040827
  Receipt Date: 20040609
  Transmission Date: 20050211
  Serious: Yes (Hospitalization, Other)
  Sender: FDA-Public Use
  Company Number: DE-BRISTOL-MYERS SQUIBB COMPANY-12609640

PATIENT
  Age: 65 Year
  Sex: Male
  Weight: 74 kg

DRUGS (9)
  1. PLATINEX [Suspect]
     Indication: GASTRIC CANCER
     Dosage: DAY 15 OF CYCLE
     Route: 042
     Dates: start: 20040601, end: 20040601
  2. FLUOROURACIL [Suspect]
     Indication: GASTRIC CANCER
     Dosage: DAY 15 OF CYCLE
     Route: 042
     Dates: start: 20040601, end: 20040601
  3. FOLINIC ACID [Suspect]
     Indication: GASTRIC CANCER
     Dosage: DAY 15 OF CYCLE
     Route: 042
     Dates: start: 20040601, end: 20040601
  4. SELENIUM TRACE METAL ADDITIVE [Concomitant]
     Dates: end: 20040603
  5. ESOMEPRAZOLE [Concomitant]
     Dates: end: 20040603
  6. GRANISETRON [Concomitant]
     Indication: PREMEDICATION
     Dates: start: 20040601, end: 20040601
  7. SODIUM CHLORIDE 0.9% [Concomitant]
     Indication: PREMEDICATION
     Dosage: OVER 3 HOURS PRIOR TO CISPLATIN. OVER 1 HOUR POST CISPLATIN
     Dates: start: 20040601, end: 20040601
  8. MANNITOL [Concomitant]
     Indication: PREMEDICATION
     Dates: start: 20040601, end: 20040601
  9. DEXAMETHASONE [Concomitant]
     Indication: PREMEDICATION
     Dates: start: 20040531, end: 20040602

REACTIONS (4)
  - ABDOMINAL PAIN [None]
  - DIARRHOEA [None]
  - GASTROINTESTINAL DISORDER [None]
  - VOMITING [None]
